FAERS Safety Report 17731648 (Version 1)
Quarter: 2020Q2

REPORT INFORMATION
  Report Type: Spontaneous
  Country: GB (occurrence: GB)
  Receive Date: 20200501
  Receipt Date: 20200501
  Transmission Date: 20200714
  Serious: Yes (Other)
  Sender: FDA-Public Use
  Company Number: GB-SUN PHARMACEUTICAL INDUSTRIES LTD-2020R1-244686

PATIENT
  Age: 47 Year
  Sex: Female

DRUGS (9)
  1. TAZOCIN [Suspect]
     Active Substance: PIPERACILLIN SODIUM\TAZOBACTAM SODIUM
     Indication: SKIN ULCER
     Dosage: UNK
     Route: 065
  2. TEICOPLANIN [Suspect]
     Active Substance: TEICOPLANIN
     Indication: SKIN ULCER
     Dosage: UNK
     Route: 065
  3. AUGMENTIN [Suspect]
     Active Substance: AMOXICILLIN\CLAVULANATE POTASSIUM
     Indication: SKIN ULCER
     Route: 065
  4. BENZYLPENICILLIN [Suspect]
     Active Substance: PENICILLIN G
     Indication: SKIN ULCER
     Dosage: UNK
     Route: 065
  5. DOXYCYCLINE. [Suspect]
     Active Substance: DOXYCYCLINE
     Indication: SKIN ULCER
     Dosage: UNK
     Route: 065
  6. FLUCLOXACILLIN [Suspect]
     Active Substance: FLUCLOXACILLIN
     Indication: SKIN ULCER
     Dosage: UNK
     Route: 065
  7. METRONIDAZOLE. [Suspect]
     Active Substance: METRONIDAZOLE
     Indication: SKIN ULCER
     Dosage: UNK
     Route: 065
  8. CLINDAMYCIN. [Suspect]
     Active Substance: CLINDAMYCIN
     Indication: SKIN ULCER
     Dosage: UNK
     Route: 065
  9. CIPROFLOXACIN. [Suspect]
     Active Substance: CIPROFLOXACIN
     Indication: SKIN ULCER
     Dosage: UNK
     Route: 065

REACTIONS (1)
  - Drug resistance [Recovered/Resolved]
